FAERS Safety Report 7924667 (Version 3)
Quarter: 2013Q1

REPORT INFORMATION
  Report Type: Spontaneous
  Country: GB (occurrence: GB)
  Receive Date: 20110502
  Receipt Date: 20130320
  Transmission Date: 20140127
  Serious: Yes (Disabling, Other)
  Sender: FDA-Public Use
  Company Number: US-PFIZER INC-2008067170

PATIENT
  Age: 60 Year
  Sex: Female

DRUGS (5)
  1. SERTRALINE HCL [Suspect]
     Indication: DEPRESSION
     Dosage: UNK
  2. PAROXETINE [Suspect]
     Indication: DEPRESSION
     Dosage: UNK
  3. VENLAFAXINE HYDROCHLORIDE [Suspect]
     Indication: DEPRESSION
     Dosage: UNK
  4. FLUOXETINE HCL [Suspect]
     Indication: DEPRESSION
     Dosage: UNK
  5. ESCITALOPRAM OXALATE [Suspect]
     Indication: DEPRESSION
     Dosage: UNK

REACTIONS (5)
  - Disturbance in sexual arousal [Unknown]
  - Disturbance in sexual arousal [Recovered/Resolved]
  - Emotional disorder [Unknown]
  - Depressed mood [Unknown]
  - Dissociation [Unknown]
